FAERS Safety Report 12960678 (Version 4)
Quarter: 2017Q1

REPORT INFORMATION
  Report Type: Report from Study
  Country: CN (occurrence: CN)
  Receive Date: 20161121
  Receipt Date: 20170118
  Transmission Date: 20170428
  Serious: Yes (Life-Threatening, Hospitalization)
  Sender: FDA-Public Use
  Company Number: CN-JNJFOC-20161114518

PATIENT
  Age: 24 Year
  Sex: Female
  Weight: 80 kg

DRUGS (2)
  1. REMICADE [Suspect]
     Active Substance: INFLIXIMAB
     Indication: PSORIASIS
     Route: 042
  2. REMICADE [Suspect]
     Active Substance: INFLIXIMAB
     Indication: PSORIASIS
     Dosage: AT THE DOSAGE OF 200 MG/TIME
     Route: 042
     Dates: start: 20160711, end: 20161114

REACTIONS (14)
  - Heart rate decreased [Recovered/Resolved]
  - Decubitus ulcer [Unknown]
  - Palpitations [Recovered/Resolved]
  - Infusion related reaction [Unknown]
  - Erythema [Unknown]
  - Dizziness [Unknown]
  - Depressed mood [Recovering/Resolving]
  - Heart rate increased [Recovered/Resolved]
  - Cardiac arrest [Recovered/Resolved]
  - Dyspnoea [Recovered/Resolved]
  - Hypotension [Recovering/Resolving]
  - Psoriatic arthropathy [Unknown]
  - Papule [Unknown]
  - Coma [Recovered/Resolved]

NARRATIVE: CASE EVENT DATE: 20161114
